FAERS Safety Report 8189240-6 (Version None)
Quarter: 2012Q1

REPORT INFORMATION
  Report Type: 
  Country: None (occurrence: None)
  Receive Date: 20120306
  Receipt Date: 20120306
  Transmission Date: 20120608
  Serious: Yes (Hospitalization)
  Sender: FDA-Public Use
  Company Number: None

PATIENT
  Sex: Female

DRUGS (1)
  1. WARFARIN SODIUM [Suspect]
     Dosage: TAKE 1 TABLET DAILY OR AS DIRECTED BY PHYSICIAN

REACTIONS (1)
  - INTERNATIONAL NORMALISED RATIO DECREASED [None]
